FAERS Safety Report 20883514 (Version 1)
Quarter: 2022Q2

REPORT INFORMATION
  Report Type: Spontaneous
  Country: GB (occurrence: GB)
  Receive Date: 20220527
  Receipt Date: 20220527
  Transmission Date: 20220720
  Serious: Yes (Disabling)
  Sender: FDA-Public Use
  Company Number: None

PATIENT
  Age: 72 Year
  Sex: Female
  Weight: 59 kg

DRUGS (14)
  1. RAMIPRIL [Suspect]
     Active Substance: RAMIPRIL
     Indication: Ill-defined disorder
     Dates: start: 20220520
  2. ASPIRIN [Concomitant]
     Active Substance: ASPIRIN
     Indication: Ill-defined disorder
     Dosage: TWO TO BE TAKEN DAILY
     Dates: start: 20210113
  3. ATORVASTATIN [Concomitant]
     Active Substance: ATORVASTATIN
     Indication: Ill-defined disorder
     Dosage: TAKE ONE EACH NIGHT (TO HELP REDUCE CHOLESTEROL...
     Dates: start: 20210113
  4. COCODAMOL [Concomitant]
     Active Substance: ACETAMINOPHEN\CODEINE PHOSPHATE
     Indication: Ill-defined disorder
     Dosage: TAKE 1 OR 2 4 TIMES/DAY
     Dates: start: 20210113
  5. CHOLECALCIFEROL [Concomitant]
     Active Substance: CHOLECALCIFEROL
     Indication: Ill-defined disorder
     Dosage: ONED TABLET DAILY
     Dates: start: 20220211, end: 20220302
  6. DOXYCYCLINE [Concomitant]
     Active Substance: DOXYCYCLINE
     Indication: Ill-defined disorder
     Dosage: TAKE TWO  IMMEDIATELY THEN ONE ONCE A DAY
     Dates: start: 20220328, end: 20220404
  7. BECLOMETHASONE\FORMOTEROL [Concomitant]
     Active Substance: BECLOMETHASONE\FORMOTEROL
     Indication: Ill-defined disorder
     Dosage: TWO PUFFS TWICE DAILY
     Dates: start: 20210113
  8. NITROGLYCERIN [Concomitant]
     Active Substance: NITROGLYCERIN
     Indication: Ill-defined disorder
     Dosage: ONE PUFF AS NEEDED
     Dates: start: 20220512
  9. LACIDIPINE [Concomitant]
     Active Substance: LACIDIPINE
     Indication: Ill-defined disorder
     Dosage: TAKE ONE TABLET DAILY (TOTAL DAILY DOSE 6MG)
     Dates: start: 20210113
  10. LANSOPRAZOLE [Concomitant]
     Active Substance: LANSOPRAZOLE
     Indication: Ill-defined disorder
     Dosage: TAKE ONE EACH MORNING (TO REDUCE STOMACH ACID)
     Dates: start: 20210113
  11. PREDNISOLONE [Concomitant]
     Active Substance: PREDNISOLONE
     Indication: Ill-defined disorder
     Dosage: TAKE SIX IN THE MORNING
     Dates: start: 20220328, end: 20220402
  12. VITAMIN D3 [Concomitant]
     Active Substance: CHOLECALCIFEROL
     Indication: Ill-defined disorder
     Dosage: TAKE ONE DAILY
     Dates: start: 20220302
  13. RAMIPRIL [Concomitant]
     Active Substance: RAMIPRIL
     Indication: Ill-defined disorder
     Dosage: TAKE ONE DAILY
     Dates: start: 20220506
  14. ALBUTEROL [Concomitant]
     Active Substance: ALBUTEROL
     Indication: Ill-defined disorder
     Dosage: INHALE 4-6 PUFFS WHEN REQUIRED UPTO FOUR TIMES ...
     Dates: start: 20211115

REACTIONS (3)
  - Cough [Recovering/Resolving]
  - Lethargy [Recovering/Resolving]
  - Headache [Recovering/Resolving]

NARRATIVE: CASE EVENT DATE: 20220520
